FAERS Safety Report 4954652-8 (Version None)
Quarter: 2006Q1

REPORT INFORMATION
  Report Type: 
  Country: None (occurrence: None)
  Receive Date: 20060327
  Receipt Date: 20060309
  Transmission Date: 20060701
  Serious: Yes (Hospitalization)
  Sender: FDA-Public Use
  Company Number: US-AMGEN-US171837

PATIENT
  Sex: Female
  Weight: 67.2 kg

DRUGS (4)
  1. NEULASTA [Suspect]
     Indication: CHEMOTHERAPY
     Route: 058
     Dates: start: 20060222
  2. TAXOTERE [Suspect]
     Route: 065
     Dates: start: 20060214
  3. CARBOPLATIN [Concomitant]
     Route: 065
     Dates: start: 20060214
  4. HERCEPTIN [Concomitant]
     Route: 065
     Dates: start: 20060214

REACTIONS (9)
  - ABDOMINAL PAIN [None]
  - ASTHENIA [None]
  - DEHYDRATION [None]
  - DIARRHOEA [None]
  - DIVERTICULUM [None]
  - HYPOTENSION [None]
  - NAUSEA [None]
  - PYREXIA [None]
  - VOMITING [None]
